FAERS Safety Report 24815755 (Version 3)
Quarter: 2025Q2

REPORT INFORMATION
  Report Type: Spontaneous
  Country: CA (occurrence: CA)
  Receive Date: 20250107
  Receipt Date: 20250613
  Transmission Date: 20250717
  Serious: Yes (Other)
  Sender: NOVARTIS
  Company Number: CA-SANDOZ-SDZ2025CA000207

PATIENT
  Age: 54 Year
  Sex: Female
  Weight: 113 kg

DRUGS (16)
  1. CARBAMAZEPINE [Suspect]
     Active Substance: CARBAMAZEPINE
     Indication: Product used for unknown indication
     Dosage: 2400 MG, QD (1200 MG, BID)
     Route: 065
  2. CARBAMAZEPINE [Suspect]
     Active Substance: CARBAMAZEPINE
     Dosage: 600 MG, QD
     Route: 065
  3. GABAPENTIN [Suspect]
     Active Substance: GABAPENTIN
     Indication: Product used for unknown indication
     Dosage: 1800 MG, QD (900 MG, BID)
     Route: 065
  4. GABAPENTIN [Suspect]
     Active Substance: GABAPENTIN
     Dosage: 600 MG, QD
     Route: 065
  5. GABAPENTIN [Suspect]
     Active Substance: GABAPENTIN
     Dosage: 900 MG, QD
     Route: 065
  6. XCOPRI [Suspect]
     Active Substance: CENOBAMATE
     Indication: Partial seizures
     Dosage: 150 MG, QD
     Route: 048
  7. XCOPRI [Suspect]
     Active Substance: CENOBAMATE
     Indication: Adjuvant therapy
     Dosage: 25 MG, QD
     Route: 048
  8. XCOPRI [Suspect]
     Active Substance: CENOBAMATE
     Dosage: 12.5 MG, QD
     Route: 048
  9. XCOPRI [Suspect]
     Active Substance: CENOBAMATE
     Dosage: 50 MG, QD
     Route: 048
  10. XCOPRI [Suspect]
     Active Substance: CENOBAMATE
     Dosage: 200 MG, QD
     Route: 048
  11. XCOPRI [Suspect]
     Active Substance: CENOBAMATE
     Dosage: 100 MG, QD
     Route: 048
  12. XCOPRI [Suspect]
     Active Substance: CENOBAMATE
     Dosage: 150 MG, QD
     Route: 048
  13. XCOPRI [Suspect]
     Active Substance: CENOBAMATE
     Dosage: 100 MG, QD
     Route: 048
  14. TYLENOL [Concomitant]
     Active Substance: ACETAMINOPHEN
     Indication: Product used for unknown indication
     Route: 065
  15. ADVIL [Concomitant]
     Active Substance: IBUPROFEN
     Indication: Product used for unknown indication
     Route: 065
  16. CANNABIDIOL [Concomitant]
     Active Substance: CANNABIDIOL
     Indication: Product used for unknown indication
     Route: 065

REACTIONS (20)
  - Anxiety [Unknown]
  - Apathy [Unknown]
  - Arthralgia [Unknown]
  - Crying [Unknown]
  - Dementia [Unknown]
  - Depression [Unknown]
  - Drug interaction [Unknown]
  - Fatigue [Unknown]
  - Headache [Unknown]
  - Ill-defined disorder [Unknown]
  - Increased need for sleep [Unknown]
  - Mania [Unknown]
  - Memory impairment [Unknown]
  - Mood altered [Unknown]
  - Pain [Unknown]
  - Pain in extremity [Unknown]
  - Seizure [Unknown]
  - Suicidal ideation [Unknown]
  - Somnolence [Unknown]
  - Off label use [Unknown]
